FAERS Safety Report 20552630 (Version 1)
Quarter: 2022Q1

REPORT INFORMATION
  Report Type: Spontaneous
  Country: US (occurrence: None)
  Receive Date: 20220303
  Receipt Date: 20220303
  Transmission Date: 20220423
  Serious: Yes (Hospitalization)
  Sender: FDA-Public Use
  Company Number: None

PATIENT
  Age: 31 Year
  Sex: Female
  Weight: 46.8 kg

DRUGS (2)
  1. CANNABIDIOL\CANNABIS SATIVA SEED OIL [Suspect]
     Active Substance: CANNABIDIOL\CANNABIS SATIVA SEED OIL
     Indication: Anxiety
     Dosage: OTHER QUANTITY : 1 ML;?FREQUENCY : DAILY;?
     Route: 060
     Dates: start: 20220220, end: 20220220
  2. ALLEGRA [Concomitant]
     Active Substance: FEXOFENADINE HYDROCHLORIDE

REACTIONS (18)
  - Chest pain [None]
  - Heart rate increased [None]
  - Dizziness [None]
  - Dizziness [None]
  - Presyncope [None]
  - Gait inability [None]
  - Altered state of consciousness [None]
  - Chest discomfort [None]
  - Dry mouth [None]
  - Hypersensitivity [None]
  - Paraesthesia oral [None]
  - Dysphagia [None]
  - Memory impairment [None]
  - Bradyphrenia [None]
  - Tremor [None]
  - Blood potassium decreased [None]
  - Substance use [None]
  - Thinking abnormal [None]

NARRATIVE: CASE EVENT DATE: 20220220
